FAERS Safety Report 14550298 (Version 1)
Quarter: 2018Q1

REPORT INFORMATION
  Report Type: Spontaneous
  Country: US (occurrence: US)
  Receive Date: 20180219
  Receipt Date: 20180219
  Transmission Date: 20180509
  Serious: Yes (Other)
  Sender: FDA-Public Use
  Company Number: US-ENDO PHARMACEUTICALS INC-2018-019532

PATIENT
  Age: 26 Year
  Sex: Female

DRUGS (1)
  1. CORPHEDRA [Suspect]
     Active Substance: EPHEDRINE SULFATE
     Indication: PROPHYLAXIS
     Dosage: 10 MG, UNKNOWN
     Route: 042

REACTIONS (2)
  - Acute coronary syndrome [Recovered/Resolved]
  - Exposure during pregnancy [Unknown]
